FAERS Safety Report 7318003 (Version 2)
Quarter: 2020Q3

REPORT INFORMATION
  Report Type: Report from Study
  Country: GB (occurrence: GB)
  Receive Date: 20100312
  Receipt Date: 20100319
  Transmission Date: 20201105
  Serious: Yes (Death)
  Sender: FDA-Public Use
  Company Number: GB-ROCHE-689288

PATIENT
  Age: 74 Year
  Sex: Female

DRUGS (14)
  1. DIGOXIN. [Concomitant]
     Active Substance: DIGOXIN
     Dosage: TREATMENT STOPPED
     Route: 048
     Dates: start: 20070823, end: 20100302
  2. FUROSEMIDE. [Concomitant]
     Active Substance: FUROSEMIDE
     Route: 042
     Dates: start: 20100301, end: 20100302
  3. DOMPERIDONE [Concomitant]
     Active Substance: DOMPERIDONE
     Route: 048
     Dates: end: 20100302
  4. CITALOPRAM [Concomitant]
     Active Substance: CITALOPRAM HYDROBROMIDE
     Dates: end: 20100302
  5. OXYCONTIN [Concomitant]
     Active Substance: OXYCODONE HYDROCHLORIDE
     Dates: start: 20080423, end: 20100302
  6. SODIUM CHLORIDE. [Concomitant]
     Active Substance: SODIUM CHLORIDE
     Dosage: DRUG: SALINE NEBS.
     Dates: start: 20100223, end: 20100302
  7. SERETIDE [Concomitant]
     Active Substance: FLUTICASONE PROPIONATE\SALMETEROL XINAFOATE
     Dosage: TDD: 4 PUFFS
     Dates: end: 20100302
  8. DICLOFENAC [Suspect]
     Active Substance: DICLOFENAC
     Indication: PRODUCT USED FOR UNKNOWN INDICATION
     Dosage: TREATMENT STOPPED.
     Route: 048
     Dates: start: 20070823, end: 20100302
  9. AMIODARONE [Concomitant]
     Active Substance: AMIODARONE
     Dates: start: 20071126, end: 20100302
  10. CALCIUM CARBONATE. [Concomitant]
     Active Substance: CALCIUM CARBONATE
     Dates: start: 20070430, end: 20100302
  11. LEVOTHYROXINE. [Concomitant]
     Active Substance: LEVOTHYROXINE
     Dates: end: 20100302
  12. IBANDRONIC ACID. [Suspect]
     Active Substance: IBANDRONIC ACID
     Dosage: TREATMENT STOPPED.
     Route: 048
     Dates: start: 20070430, end: 20100302
  13. OMEPRAZOLE. [Concomitant]
     Active Substance: OMEPRAZOLE
     Route: 048
     Dates: end: 20100302
  14. SALBUTAMOL [Concomitant]
     Dosage: DRUG: SALBUTAMOL NEBS.
     Dates: start: 20100225, end: 20100302

REACTIONS (1)
  - Gastrointestinal haemorrhage [Fatal]

NARRATIVE: CASE EVENT DATE: 20100303
